FAERS Safety Report 8912363 (Version 1)
Quarter: 2012Q4

REPORT INFORMATION
  Report Type: 
  Country: AT (occurrence: AT)
  Receive Date: 20121116
  Receipt Date: 20121116
  Transmission Date: 20130627
  Serious: Yes (Other)
  Sender: FDA-Public Use
  Company Number: AT-RANBAXY-2012R1-61846

PATIENT
  Age: 67 Year
  Sex: Female

DRUGS (1)
  1. FLECAINIDE [Suspect]
     Indication: ATRIAL FIBRILLATION
     Dosage: 100 mg, twice daily
     Route: 065

REACTIONS (2)
  - Cardiac arrest [Recovering/Resolving]
  - Incorrect dose administered [Unknown]
